FAERS Safety Report 5204321-4 (Version None)
Quarter: 2007Q1

REPORT INFORMATION
  Report Type: 
  Country: None (occurrence: None)
  Receive Date: 20070110
  Receipt Date: 20060907
  Transmission Date: 20070707
  Serious: Yes (Other)
  Sender: FDA-Public Use
  Company Number: US-BRISTOL-MYERS SQUIBB COMPANY-13279351

PATIENT
  Sex: Female

DRUGS (6)
  1. ABILIFY [Suspect]
     Indication: BIPOLAR DISORDER
     Route: 048
  2. ZOLOFT [Concomitant]
  3. TRAZODONE HCL [Concomitant]
  4. PREVACID [Concomitant]
  5. ALBUTEROL SULATE [Concomitant]
     Route: 049
  6. VISTARIL [Concomitant]
     Indication: SLEEP DISORDER

REACTIONS (2)
  - LACTATION DISORDER [None]
  - PREGNANCY [None]
